FAERS Safety Report 5464422-2 (Version None)
Quarter: 2007Q3

REPORT INFORMATION
  Report Type: 
  Country: None (occurrence: None)
  Receive Date: 20070921
  Receipt Date: 20070918
  Transmission Date: 20080115
  Serious: Yes (Other)
  Sender: FDA-Public Use
  Company Number: US-JNJFOC-20070903762

PATIENT
  Age: 75 Year
  Sex: Female
  Weight: 77.11 kg

DRUGS (9)
  1. PEPCID COMPLETE [Suspect]
  2. PEPCID COMPLETE [Suspect]
     Indication: GASTROOESOPHAGEAL REFLUX DISEASE
     Dosage: 1 OR 2 CHEWABLE TABLETS AS NEEDED
  3. DIOVAN [Concomitant]
     Indication: HYPERTENSION
  4. TOPROL-XL [Concomitant]
     Indication: HYPERTENSION
  5. ASPIRIN [Concomitant]
     Indication: THROMBOSIS PROPHYLAXIS
  6. CALCIUM [Concomitant]
     Indication: NUTRITIONAL SUPPORT
  7. NIACIN WITH VITAMIN D [Concomitant]
     Indication: BLOOD CHOLESTEROL INCREASED
  8. ZOCOR [Concomitant]
     Indication: BLOOD CHOLESTEROL INCREASED
  9. PLAVIX [Concomitant]
     Indication: THROMBOSIS PROPHYLAXIS

REACTIONS (1)
  - BLOOD PRESSURE INCREASED [None]
